FAERS Safety Report 16069269 (Version 4)
Quarter: 2024Q3

REPORT INFORMATION
  Report Type: Spontaneous
  Country: DE (occurrence: DE)
  Receive Date: 20190313
  Receipt Date: 20240926
  Transmission Date: 20241017
  Serious: Yes (Other)
  Sender: MYLAN
  Company Number: DE-DRREDDYS-GER/GER/18/0102996

PATIENT
  Age: 51 Year
  Sex: Male
  Weight: 90 kg

DRUGS (8)
  1. SERTRALINE [Suspect]
     Active Substance: SERTRALINE HYDROCHLORIDE
     Indication: Product used for unknown indication
     Dosage: 150 MILLIGRAM, TOTAL (150 MG ONCE/SINGLE)
     Route: 048
     Dates: start: 20180802, end: 20180802
  2. BISOPROLOL [Suspect]
     Active Substance: BISOPROLOL\BISOPROLOL FUMARATE
     Indication: Product used for unknown indication
     Dosage: 75 MILLIGRAM, TOTAL (75 MG ONCE/SINGLE)
     Route: 048
     Dates: start: 20180802, end: 20180802
  3. METOPROLOL [Suspect]
     Active Substance: METOPROLOL
     Indication: Product used for unknown indication
     Dosage: 1000 MILLIGRAM, TOTAL (1000 MG, 1X)
     Route: 065
     Dates: start: 20180802, end: 20180802
  4. RAMIPRIL [Suspect]
     Active Substance: RAMIPRIL
     Indication: Product used for unknown indication
     Dosage: 30 MILLIGRAM, TOTAL (30 MG ONCE/SINGLE)
     Route: 048
     Dates: start: 20180802, end: 20180802
  5. ALCOHOL [Suspect]
     Active Substance: ALCOHOL
     Indication: Product used for unknown indication
     Dosage: 1 DOSAGE FORM, TOTAL (REPORTED AS MANY LITERS)
     Route: 048
     Dates: start: 20180802, end: 20180802
  6. METOPROLOL TARTRATE [Suspect]
     Active Substance: METOPROLOL TARTRATE
     Indication: Product used for unknown indication
     Dosage: 1000 MILLIGRAM, TOTAL (1000 MG ONCE/SINGLE)
     Route: 048
     Dates: start: 20180802, end: 20180802
  7. PIPAMPERONE HYDROCHLORIDE [Suspect]
     Active Substance: PIPAMPERONE HYDROCHLORIDE
     Indication: Product used for unknown indication
     Dosage: 560 MILLIGRAM, TOTAL (560 MG ONCE/SINGLE)
     Route: 048
     Dates: start: 20180802, end: 20180802
  8. PIPAMPERONE [Suspect]
     Active Substance: PIPAMPERONE
     Indication: Product used for unknown indication
     Dosage: 560 MILLIGRAM, TOTAL (560 MG, SINGLE (560 MG ONCE/SINGLE)
     Route: 048
     Dates: start: 20180802, end: 20180802

REACTIONS (5)
  - Hypotension [Unknown]
  - Intentional overdose [Unknown]
  - Drug abuse [Unknown]
  - Suicide attempt [Unknown]
  - Intentional product misuse [Unknown]

NARRATIVE: CASE EVENT DATE: 20180802
